FAERS Safety Report 13917918 (Version 2)
Quarter: 2017Q3

REPORT INFORMATION
  Report Type: Spontaneous
  Country: JP (occurrence: JP)
  Receive Date: 20170829
  Receipt Date: 20170928
  Transmission Date: 20171127
  Serious: Yes (Hospitalization)
  Sender: FDA-Public Use
  Company Number: JP-ALLERGAN-1747742US

PATIENT
  Age: 82 Year
  Sex: Female

DRUGS (1)
  1. LINACLOTIDE - BP [Suspect]
     Active Substance: LINACLOTIDE
     Indication: PRODUCT USED FOR UNKNOWN INDICATION
     Dosage: 0.25 MG, QD, AFTER MEAL
     Route: 048

REACTIONS (3)
  - Inappropriate schedule of drug administration [Unknown]
  - Performance status decreased [Unknown]
  - Malaise [Unknown]
